FAERS Safety Report 4566335-7 (Version None)
Quarter: 2005Q1

REPORT INFORMATION
  Report Type: 
  Country: None (occurrence: None)
  Receive Date: 20050128
  Receipt Date: 20050113
  Transmission Date: 20050727
  Serious: Yes (Other)
  Sender: FDA-Public Use
  Company Number: 2005-DE-00156GD

PATIENT
  Age: 43 Year
  Sex: Male

DRUGS (8)
  1. NEVIRAPINE (NEVIRAPINE) (NEVIRAPINE) [Suspect]
     Indication: ACQUIRED IMMUNODEFICIENCY SYNDROME
     Dosage: 400 MG
  2. NEVIRAPINE (NEVIRAPINE) (NEVIRAPINE) [Suspect]
     Indication: HIV INFECTION
     Dosage: 400 MG
  3. STAVUDINE (STAVUDINE) [Suspect]
     Indication: ACQUIRED IMMUNODEFICIENCY SYNDROME
     Dosage: 60 MG
  4. STAVUDINE (STAVUDINE) [Suspect]
     Indication: HIV INFECTION
     Dosage: 60 MG
  5. NELFINAVIR (NELFINAVIR) [Suspect]
     Indication: ACQUIRED IMMUNODEFICIENCY SYNDROME
     Dosage: 2250 MG
  6. NELFINAVIR (NELFINAVIR) [Suspect]
     Indication: HIV INFECTION
     Dosage: 2250 MG
  7. PARACETAMOL WITH CODEINE (PANADEINE CO) (COFFEIN, PARACETAMOL) [Concomitant]
  8. INDOMETHACIN [Concomitant]

REACTIONS (1)
  - ASEPTIC NECROSIS BONE [None]
